FAERS Safety Report 13791485 (Version 3)
Quarter: 2020Q3

REPORT INFORMATION
  Report Type: Report from Study
  Country: KR (occurrence: KR)
  Receive Date: 20170725
  Receipt Date: 20171030
  Transmission Date: 20201105
  Serious: Yes (Death, Hospitalization)
  Sender: FDA-Public Use
  Company Number: KR-ASTRAZENECA-2017SE75335

PATIENT
  Age: 29607 Day
  Sex: Male
  Weight: 58 kg

DRUGS (33)
  1. MEDI4736 [Suspect]
     Active Substance: DURVALUMAB
     Indication: NON-SMALL CELL LUNG CANCER
     Route: 042
     Dates: start: 20151202, end: 20151202
  2. TANTUM [Concomitant]
     Active Substance: BENZYDAMINE HYDROCHLORIDE
     Indication: STOMATITIS
     Dosage: 15.0ML AS REQUIRED
     Route: 002
     Dates: start: 20160517
  3. BANAN [Concomitant]
     Active Substance: CEFPODOXIME PROXETIL
     Indication: ISCHAEMIC ENTERITIS
     Route: 048
     Dates: start: 20160528, end: 20160607
  4. MEDI4736 [Suspect]
     Active Substance: DURVALUMAB
     Indication: NON-SMALL CELL LUNG CANCER
     Route: 042
     Dates: start: 20160321, end: 20160321
  5. CIPROFLOXACIN. [Concomitant]
     Active Substance: CIPROFLOXACIN
     Indication: ISCHAEMIC ENTERITIS
     Route: 042
     Dates: start: 20160607, end: 20160611
  6. MEDI4736 [Suspect]
     Active Substance: DURVALUMAB
     Indication: NON-SMALL CELL LUNG CANCER
     Route: 042
     Dates: start: 20160222, end: 20160222
  7. MEDI4736 [Suspect]
     Active Substance: DURVALUMAB
     Indication: NON-SMALL CELL LUNG CANCER
     Route: 042
     Dates: end: 20160517
  8. SODIUM BICARBONATE. [Concomitant]
     Active Substance: SODIUM BICARBONATE
     Indication: STOMATITIS
     Dosage: 10.0G AS REQUIRED
     Route: 002
     Dates: start: 20160517
  9. SOLU?MEDROL [Concomitant]
     Active Substance: METHYLPREDNISOLONE SODIUM SUCCINATE
     Indication: ISCHAEMIC ENTERITIS
     Route: 042
     Dates: start: 20160608, end: 20160611
  10. MEDI4736 [Suspect]
     Active Substance: DURVALUMAB
     Indication: NON-SMALL CELL LUNG CANCER
     Route: 042
     Dates: start: 20151228, end: 20151228
  11. IR CODON [Concomitant]
     Active Substance: OXYCODONE HYDROCHLORIDE
     Indication: ABDOMINAL PAIN
     Dosage: 5.0MG AS REQUIRED
     Route: 048
     Dates: start: 20160530
  12. EXFORGE [Concomitant]
     Active Substance: AMLODIPINE BESYLATE\VALSARTAN
     Indication: HYPERTENSION
     Route: 048
     Dates: start: 20160528, end: 20160607
  13. SOLONDO [Concomitant]
     Active Substance: PREDNISOLONE
     Indication: ISCHAEMIC ENTERITIS
     Route: 048
     Dates: start: 20160613
  14. SYLCON [Concomitant]
     Indication: CONSTIPATION PROPHYLAXIS
     Route: 048
     Dates: start: 20160526, end: 20160607
  15. TREMELIMUMAB. [Suspect]
     Active Substance: TREMELIMUMAB
     Indication: NON-SMALL CELL LUNG CANCER
     Route: 042
     Dates: start: 20151202, end: 20151202
  16. PEMETREXED DISODIUM [Concomitant]
     Active Substance: PEMETREXED DISODIUM
     Indication: CHEMOTHERAPY SINGLE AGENT SYSTEMIC
     Dosage: 603.75 MG
     Route: 042
     Dates: start: 20160517, end: 20160613
  17. CITOPCIN [Concomitant]
     Indication: ISCHAEMIC ENTERITIS
     Route: 048
     Dates: start: 20151202, end: 20151209
  18. CURAN [Concomitant]
     Active Substance: RANITIDINE HYDROCHLORIDE
     Indication: ABDOMINAL PAIN UPPER
     Route: 042
     Dates: start: 20160608, end: 20160611
  19. TREMELIMUMAB. [Suspect]
     Active Substance: TREMELIMUMAB
     Indication: NON-SMALL CELL LUNG CANCER
     Route: 042
     Dates: start: 20160125, end: 20160125
  20. TREMELIMUMAB. [Suspect]
     Active Substance: TREMELIMUMAB
     Indication: NON-SMALL CELL LUNG CANCER
     Route: 042
     Dates: start: 20160222, end: 20160222
  21. FOLIC ACID. [Concomitant]
     Active Substance: FOLIC ACID
     Indication: PREMEDICATION
     Route: 048
     Dates: start: 20160517
  22. MACPERAN [Concomitant]
     Active Substance: METOCLOPRAMIDE HYDROCHLORIDE
     Indication: PROPHYLAXIS OF NAUSEA AND VOMITING
     Dosage: 5.0MG AS REQUIRED
     Route: 048
     Dates: start: 20151202, end: 20151206
  23. MEDI4736 [Suspect]
     Active Substance: DURVALUMAB
     Indication: NON-SMALL CELL LUNG CANCER
     Route: 042
     Dates: start: 20160415, end: 20160415
  24. IR CODON [Concomitant]
     Active Substance: OXYCODONE HYDROCHLORIDE
     Indication: ABDOMINAL PAIN
     Dosage: 10.0MG AS REQUIRED
     Route: 048
     Dates: start: 20151215, end: 20151230
  25. SEROQUEL [Concomitant]
     Active Substance: QUETIAPINE FUMARATE
     Indication: DELIRIUM
     Route: 048
     Dates: start: 20160530, end: 20160607
  26. SOLONDO [Concomitant]
     Active Substance: PREDNISOLONE
     Indication: ISCHAEMIC ENTERITIS
     Route: 048
     Dates: start: 20160610, end: 20160612
  27. MEDI4736 [Suspect]
     Active Substance: DURVALUMAB
     Indication: NON-SMALL CELL LUNG CANCER
     Route: 042
     Dates: start: 20160125, end: 20160125
  28. TREMELIMUMAB. [Suspect]
     Active Substance: TREMELIMUMAB
     Indication: NON-SMALL CELL LUNG CANCER
     Route: 042
     Dates: start: 20151228, end: 20151228
  29. FOLIC ACID. [Concomitant]
     Active Substance: FOLIC ACID
     Indication: PREMEDICATION
     Route: 048
     Dates: start: 20151124, end: 20151201
  30. MACPERAN [Concomitant]
     Active Substance: METOCLOPRAMIDE HYDROCHLORIDE
     Indication: PROPHYLAXIS OF NAUSEA AND VOMITING
     Dosage: 10.0MG AS REQUIRED
     Route: 048
     Dates: start: 20160517
  31. BUSCOPAN [Concomitant]
     Active Substance: BUTYLSCOPOLAMINE BROMIDE
     Indication: ABDOMINAL PAIN
     Route: 030
     Dates: start: 20160605, end: 20160605
  32. CITOPCIN [Concomitant]
     Indication: ISCHAEMIC ENTERITIS
     Route: 048
     Dates: start: 20160606, end: 20160609
  33. MUCOSTA [Concomitant]
     Active Substance: REBAMIPIDE
     Indication: ABDOMINAL PAIN UPPER
     Route: 048
     Dates: start: 20160610

REACTIONS (1)
  - Colitis ischaemic [Recovering/Resolving]

NARRATIVE: CASE EVENT DATE: 20160618
